FAERS Safety Report 9152862 (Version 2)
Quarter: 2013Q2

REPORT INFORMATION
  Report Type: Spontaneous
  Country: FR (occurrence: FR)
  Receive Date: 20130309
  Receipt Date: 20130425
  Transmission Date: 20140414
  Serious: Yes (Hospitalization)
  Sender: FDA-Public Use
  Company Number: FR-UCBSA-079966

PATIENT
  Age: 84 Year
  Sex: Male
  Weight: 85 kg

DRUGS (15)
  1. KEPPRA [Suspect]
     Route: 048
     Dates: start: 2013
  2. LEVOTHYROX [Interacting]
     Dosage: IN THE MORNING
     Route: 048
     Dates: end: 20130223
  3. LEVOTHYROX [Interacting]
     Dosage: DAILY DOSE: 150 MCG
     Route: 048
     Dates: start: 20130224, end: 20130224
  4. LEVOTHYROX [Interacting]
     Dosage: DAILY DOSE : 137.5 MCG
     Route: 048
     Dates: start: 20130225, end: 20130311
  5. LEVOTHYROX [Interacting]
     Dosage: DAILY DOSE : 150 MCG
     Route: 048
     Dates: start: 20130312
  6. AMLOR [Concomitant]
     Dosage: IN THE MORNING
     Route: 048
  7. KARDEGIC [Concomitant]
     Dosage: STRENGH : 75 MG, DAILYDOSE : 1 SACHET
     Route: 048
  8. PREVISCAN [Concomitant]
     Dosage: AT NIGHT
     Route: 048
  9. ZYLORIC [Concomitant]
     Dosage: IN THE MORNING
     Route: 048
  10. TRANSIPEG [Concomitant]
     Dosage: STRENGH : 3350 ,DAILY DOSE : 2 SACHETS
     Route: 048
  11. INEXIUM [Concomitant]
     Dosage: AT NIGHT
     Route: 048
  12. DAFALGAN [Concomitant]
     Dosage: STRENGH : 500MG
     Route: 048
  13. EDUCTYL [Concomitant]
     Dosage: DAILY DOSE : ONE SUPPOSITORY
     Route: 054
  14. KAYEXALATE [Concomitant]
     Dosage: STRENGH : 454 G ,DAILY DOSE : 3 MEASURING SPOONS
     Route: 048
  15. BURINEX [Concomitant]
     Route: 042

REACTIONS (4)
  - Cerebral infarction [Recovering/Resolving]
  - Renal failure [Unknown]
  - Thyroid function test abnormal [Unknown]
  - Drug interaction [Unknown]
